FAERS Safety Report 6866524-2 (Version None)
Quarter: 2010Q3

REPORT INFORMATION
  Report Type: 
  Country: None (occurrence: None)
  Receive Date: 20100722
  Receipt Date: 20100708
  Transmission Date: 20110219
  Serious: Yes (Other)
  Sender: FDA-Public Use
  Company Number: PHHY2010US45615

PATIENT
  Sex: Female

DRUGS (11)
  1. RECLAST [Suspect]
     Dosage: UNK
     Dates: start: 20100611
  2. BONIVA [Suspect]
  3. MEDROL [Suspect]
  4. LEVOTHYROXINE SODIUM [Concomitant]
  5. CYTOMEL [Concomitant]
     Dosage: UNK
  6. MICARDIS [Concomitant]
     Indication: HYPERTENSION
  7. IRON SUPPLEMENTS [Concomitant]
  8. PRAVACHOL [Concomitant]
     Indication: HYPERCHOLESTEROLAEMIA
  9. CELEXA [Concomitant]
  10. ASPIRIN [Concomitant]
  11. CALCIUM WITH VITAMIN D [Concomitant]

REACTIONS (11)
  - ARTHRALGIA [None]
  - BURSITIS [None]
  - EAR PAIN [None]
  - ERYTHEMA [None]
  - JOINT SWELLING [None]
  - MASTICATION DISORDER [None]
  - MUSCULOSKELETAL PAIN [None]
  - OSTEONECROSIS OF JAW [None]
  - PAIN [None]
  - PAIN IN EXTREMITY [None]
  - TENDONITIS [None]
